FAERS Safety Report 6393359-X (Version None)
Quarter: 2009Q4

REPORT INFORMATION
  Report Type: 
  Country: None (occurrence: None)
  Receive Date: 20091008
  Receipt Date: 20090925
  Transmission Date: 20100525
  Serious: Yes (Other)
  Sender: FDA-Public Use
  Company Number: US-PFIZER INC-2009275710

PATIENT
  Sex: Female

DRUGS (2)
  1. PREMARIN [Suspect]
     Indication: HORMONE REPLACEMENT THERAPY
     Dosage: 0.625 MG, 1X/DAY
     Dates: start: 19980101, end: 20020216
  2. PREMPRO [Suspect]
     Indication: HORMONE REPLACEMENT THERAPY
     Dosage: 0.625 MG, 1X/DAY
     Dates: start: 19980101

REACTIONS (7)
  - AMNESIA [None]
  - ARTHRALGIA [None]
  - BREAST CANCER FEMALE [None]
  - GAIT DISTURBANCE [None]
  - LYMPHOEDEMA [None]
  - MUSCULOSKELETAL DISORDER [None]
  - POST PROCEDURAL COMPLICATION [None]
